FAERS Safety Report 18925442 (Version 1)
Quarter: 2021Q1

REPORT INFORMATION
  Report Type: Spontaneous
  Country: ES (occurrence: ES)
  Receive Date: 20210222
  Receipt Date: 20210222
  Transmission Date: 20210420
  Serious: Yes (Hospitalization)
  Sender: FDA-Public Use
  Company Number: ES-TEVA-2021-ES-1881557

PATIENT
  Age: 87 Year
  Sex: Female

DRUGS (8)
  1. RISPERIDONA TARBIS 1 MG COMPRIMIDOS EFG, 500 COMPRIMIDOS [Suspect]
     Active Substance: RISPERIDONE
     Indication: AGITATION
     Dosage: 0.5 MG
     Route: 048
     Dates: start: 20210126
  2. TRAZODONA (3160A) [Suspect]
     Active Substance: TRAZODONE HYDROCHLORIDE
     Indication: INSOMNIA
     Dosage: 100 MG
     Route: 048
     Dates: start: 20210126
  3. METAMIZOL 575 MG CAPSULA [Concomitant]
  4. OMEPRAZOL 20 MG CAPSULA [Concomitant]
  5. DELTIUS 25.000 UI/2,5 ML SOLUCION ORAL [Concomitant]
  6. CLOTRIMAZOL 10 MG/G CREMA [Concomitant]
  7. GABAPENTINA (2641A) [Suspect]
     Active Substance: GABAPENTIN
     Indication: PAIN
     Dosage: 400 MG
     Route: 048
     Dates: start: 20210109
  8. MORFINA [MORPHINE] [Suspect]
     Active Substance: MORPHINE
     Indication: PAIN
     Dosage: 100 MG
     Dates: start: 20191021

REACTIONS (1)
  - Hypoxic-ischaemic encephalopathy [Recovering/Resolving]

NARRATIVE: CASE EVENT DATE: 20210127
